FAERS Safety Report 10207930 (Version 8)
Quarter: 2014Q4

REPORT INFORMATION
  Report Type: Report from Study
  Country: US (occurrence: US)
  Receive Date: 20140530
  Receipt Date: 20141210
  Transmission Date: 20150528
  Serious: Yes (Death, Hospitalization, Disabling, Other)
  Sender: FDA-Public Use
  Company Number: US-ACTELION-A-US2014-95772

PATIENT
  Age: 56 Year
  Sex: Female

DRUGS (12)
  1. VELETRI [Suspect]
     Active Substance: EPOPROSTENOL
     Dosage: 11 NG/KG, PER MIN
     Route: 042
  2. VELETRI [Suspect]
     Active Substance: EPOPROSTENOL
     Dosage: 17 NG/KG, PER MIN
     Route: 041
     Dates: start: 20130917
  3. VELETRI [Suspect]
     Active Substance: EPOPROSTENOL
     Dosage: 17.5 NG/KG, PER MIN
     Route: 041
     Dates: start: 20130918
  4. VELETRI [Suspect]
     Active Substance: EPOPROSTENOL
     Dosage: 14 NG/L, PER MIN
     Route: 042
  5. ADCIRCA [Concomitant]
     Active Substance: TADALAFIL
  6. VELETRI [Suspect]
     Active Substance: EPOPROSTENOL
     Dosage: 17 NG/KG, UNK
     Route: 042
     Dates: start: 201310
  7. VELETRI [Suspect]
     Active Substance: EPOPROSTENOL
     Dosage: 8 NG/KG, PER MIN
     Route: 042
  8. COUMADIN [Concomitant]
     Active Substance: WARFARIN SODIUM
  9. VELETRI [Suspect]
     Active Substance: EPOPROSTENOL
     Indication: PULMONARY ARTERIAL HYPERTENSION
     Dosage: 16 NG/KG, PER MIN
     Route: 042
     Dates: start: 20130918
  10. TYVASO [Concomitant]
     Active Substance: TREPROSTINIL
  11. VELETRI [Suspect]
     Active Substance: EPOPROSTENOL
     Dosage: 15.5 NG/KG, UNK
     Route: 042
     Dates: end: 20141127
  12. LETAIRIS [Concomitant]
     Active Substance: AMBRISENTAN

REACTIONS (12)
  - Ascites [Recovering/Resolving]
  - Oedema [Unknown]
  - Death [Fatal]
  - Hypotension [Unknown]
  - Paracentesis [Unknown]
  - Transplant evaluation [Unknown]
  - Dizziness [Unknown]
  - Cough [Unknown]
  - Fatigue [Unknown]
  - Liver function test [Unknown]
  - Dyspnoea [Unknown]
  - Oedema peripheral [Unknown]

NARRATIVE: CASE EVENT DATE: 20140306
